FAERS Safety Report 9037322 (Version 1)
Quarter: 2013Q1

REPORT INFORMATION
  Report Type: Spontaneous
  Country: US (occurrence: US)
  Receive Date: 20130129
  Receipt Date: 20130129
  Transmission Date: 20140127
  Serious: No
  Sender: FDA-Public Use
  Company Number: US-BIOGENIDEC-2013BI005840

PATIENT
  Age: 50 Year
  Sex: Female

DRUGS (2)
  1. TYSABRI [Suspect]
     Indication: MULTIPLE SCLEROSIS
     Route: 042
     Dates: start: 20121018, end: 20121018
  2. AVONEX [Concomitant]
     Indication: MULTIPLE SCLEROSIS
     Route: 030

REACTIONS (5)
  - Adverse drug reaction [Recovered/Resolved]
  - Memory impairment [Not Recovered/Not Resolved]
  - Fall [Recovered/Resolved]
  - Contusion [Recovered/Resolved]
  - Loss of proprioception [Recovered/Resolved]
